FAERS Safety Report 24583970 (Version 1)
Quarter: 2024Q4

REPORT INFORMATION
  Report Type: Spontaneous
  Country: FR (occurrence: FR)
  Receive Date: 20241106
  Receipt Date: 20241106
  Transmission Date: 20250114
  Serious: Yes (Life-Threatening, Other)
  Sender: BAXTER
  Company Number: None

PATIENT
  Age: 72 Year
  Sex: Male
  Weight: 77 kg

DRUGS (3)
  1. PROPOFOL [Suspect]
     Active Substance: PROPOFOL
     Indication: General anaesthesia
     Dosage: 250 MG 1 IN TOTAL (1%, EMULSION FOR INJECTION OR INFUSION)
     Route: 042
     Dates: start: 20240926, end: 20240926
  2. ROCURONIUM [Suspect]
     Active Substance: ROCURONIUM BROMIDE
     Indication: General anaesthesia
     Dosage: 80 MG 1 IN TOTAL (SOLUTION FOR INJECTION/INFUSION)
     Route: 042
     Dates: start: 20240926, end: 20240926
  3. SEVOFLURANE [Suspect]
     Active Substance: SEVOFLURANE
     Indication: General anaesthesia
     Dosage: DOSAGE FORM: 1 DF, 1 IN TOTAL
     Dates: start: 20240926, end: 20240926

REACTIONS (1)
  - Anaphylactic shock [Recovered/Resolved]

NARRATIVE: CASE EVENT DATE: 20240926
